FAERS Safety Report 4674206-0 (Version None)
Quarter: 2005Q2

REPORT INFORMATION
  Report Type: 
  Country: None (occurrence: None)
  Receive Date: 20050524
  Receipt Date: 20050505
  Transmission Date: 20051028
  Serious: Yes (Other)
  Sender: FDA-Public Use
  Company Number: USA050495285

PATIENT
  Age: 56 Year
  Sex: Male
  Weight: 78 kg

DRUGS (10)
  1. XIGRIS [Suspect]
     Indication: SEPSIS
     Dosage: 24 UG/KG/HR
     Dates: start: 20050408
  2. VANCOMYCIN [Concomitant]
  3. FENTANYL [Concomitant]
  4. SOLU-CORTEF [Concomitant]
  5. FLOVENT [Concomitant]
  6. LASIX [Concomitant]
  7. MERREM [Concomitant]
  8. PROPOFOL [Concomitant]
  9. REGLAN [Concomitant]
  10. TYLENOL (CAPLET) [Concomitant]

REACTIONS (3)
  - HAEMATOCRIT DECREASED [None]
  - PLATELET COUNT DECREASED [None]
  - WHITE BLOOD CELL COUNT INCREASED [None]
